FAERS Safety Report 6128796-1 (Version None)
Quarter: 2009Q1

REPORT INFORMATION
  Report Type: 
  Country: None (occurrence: None)
  Receive Date: 20090320
  Receipt Date: 20090305
  Transmission Date: 20090719
  Serious: Yes (Death)
  Sender: FDA-Public Use
  Company Number: DSA_33345_2009

PATIENT
  Age: 69 Year
  Sex: Male

DRUGS (4)
  1. ENALAPRIL MALEATE [Suspect]
     Indication: CARDIAC FAILURE CONGESTIVE
     Dosage: (DF ORAL)
     Route: 048
     Dates: start: 19991229
  2. ALLOPURINOL [Concomitant]
  3. DILTIAZEM HCL [Concomitant]
  4. FUROSEMIDE [Concomitant]

REACTIONS (5)
  - ARTERIOSCLEROSIS CORONARY ARTERY [None]
  - ELECTROMECHANICAL DISSOCIATION [None]
  - MYOCARDIAL INFARCTION [None]
  - SUDDEN CARDIAC DEATH [None]
  - VENTRICULAR ARRHYTHMIA [None]
